FAERS Safety Report 22616841 (Version 1)
Quarter: 2023Q2

REPORT INFORMATION
  Report Type: Report from Study
  Country: CA (occurrence: CA)
  Receive Date: 20230619
  Receipt Date: 20230619
  Transmission Date: 20230722
  Serious: Yes (Hospitalization)
  Sender: FDA-Public Use
  Company Number: CA-JNJFOC-20230634852

PATIENT
  Age: 54 Year
  Sex: Male
  Weight: 64.922 kg

DRUGS (1)
  1. REMICADE [Suspect]
     Active Substance: INFLIXIMAB
     Indication: Crohn^s disease
     Route: 041

REACTIONS (2)
  - Intestinal resection [Recovering/Resolving]
  - Animal attack [Recovering/Resolving]

NARRATIVE: CASE EVENT DATE: 20230511
